FAERS Safety Report 9624432 (Version 1)
Quarter: 2013Q4

REPORT INFORMATION
  Report Type: Spontaneous
  Country: US (occurrence: US)
  Receive Date: 20131015
  Receipt Date: 20131015
  Transmission Date: 20140711
  Serious: No
  Sender: FDA-Public Use
  Company Number: US-009507513-1310USA004783

PATIENT
  Sex: Male

DRUGS (1)
  1. SAPHRIS [Suspect]
     Dosage: UNK
     Route: 060
     Dates: start: 201308, end: 2013

REACTIONS (2)
  - Sexual dysfunction [Unknown]
  - Loss of libido [Unknown]
